FAERS Safety Report 7982227-5 (Version None)
Quarter: 2011Q4

REPORT INFORMATION
  Report Type: 
  Country: None (occurrence: None)
  Receive Date: 20111215
  Receipt Date: 20111215
  Transmission Date: 20120403
  Serious: Yes (Life-Threatening, Hospitalization)
  Sender: FDA-Public Use
  Company Number: None

PATIENT
  Age: 52 Year
  Sex: Male
  Weight: 90.718 kg

DRUGS (2)
  1. ZIPRASIDONE HYDROCHLORIDE [Suspect]
     Indication: SCHIZOPHRENIA
     Dosage: 40MG
     Route: 048
     Dates: start: 20111017, end: 20111019
  2. ZIPRASIDONE HYDROCHLORIDE [Concomitant]
     Dosage: 80MG
     Route: 048
     Dates: start: 20111020, end: 20111020

REACTIONS (5)
  - ATRIOVENTRICULAR BLOCK [None]
  - HEART RATE DECREASED [None]
  - DIZZINESS [None]
  - PRESYNCOPE [None]
  - PACEMAKER GENERATED RHYTHM [None]
